FAERS Safety Report 16678218 (Version 4)
Quarter: 2020Q3

REPORT INFORMATION
  Report Type: Report from Study
  Country: US (occurrence: US)
  Receive Date: 20190807
  Receipt Date: 20200805
  Transmission Date: 20201102
  Serious: Yes (Hospitalization, Other)
  Sender: FDA-Public Use
  Company Number: US-SA-2017SA066762

PATIENT

DRUGS (5)
  1. VALTREX [Concomitant]
     Active Substance: VALACYCLOVIR HYDROCHLORIDE
  2. ALEMTUZUMAB [Suspect]
     Active Substance: ALEMTUZUMAB
     Dosage: 12 MG,QD
     Route: 041
     Dates: start: 20190805, end: 20190807
  3. ALEMTUZUMAB [Suspect]
     Active Substance: ALEMTUZUMAB
     Indication: MULTIPLE SCLEROSIS
     Dosage: 12 MG,QD
     Route: 041
     Dates: start: 20160208, end: 20160212
  4. ALEMTUZUMAB [Suspect]
     Active Substance: ALEMTUZUMAB
     Dosage: 12 MG,QD
     Route: 041
     Dates: start: 20170320, end: 20170322
  5. ACICLOVIR [Concomitant]
     Active Substance: ACYCLOVIR
     Dosage: UNK, BID
     Route: 065

REACTIONS (17)
  - Asthenia [Unknown]
  - Multiple sclerosis [Unknown]
  - Laboratory test abnormal [Recovered/Resolved]
  - Heart rate decreased [Unknown]
  - Fatigue [Unknown]
  - Blood pressure decreased [Unknown]
  - Rash [Recovered/Resolved]
  - Blood iron decreased [Recovered/Resolved]
  - Crystal urine present [Recovered/Resolved]
  - Herpes zoster [Unknown]
  - Syncope [Unknown]
  - Haemoglobin decreased [Recovered/Resolved]
  - Scar [Unknown]
  - Loss of consciousness [Unknown]
  - Dizziness [Unknown]
  - CD4 lymphocytes abnormal [Recovered/Resolved]
  - Feeling abnormal [Unknown]

NARRATIVE: CASE EVENT DATE: 201602
